FAERS Safety Report 11277763 (Version 7)
Quarter: 2018Q3

REPORT INFORMATION
  Report Type: Spontaneous
  Country: US (occurrence: US)
  Receive Date: 20150716
  Receipt Date: 20180917
  Transmission Date: 20181010
  Serious: Yes (Hospitalization, Other)
  Sender: FDA-Public Use
  Company Number: US-DSJP-DSU-2015-115385

PATIENT
  Age: 70 Year
  Sex: Female
  Weight: 80 kg

DRUGS (5)
  1. BENICAR [Suspect]
     Active Substance: OLMESARTAN MEDOXOMIL
     Indication: HYPERTENSION
     Dosage: 20 MG, QD
     Dates: start: 20030908, end: 20080116
  2. PREMARIN [Concomitant]
     Active Substance: ESTROGENS, CONJUGATED
     Indication: PRODUCT USED FOR UNKNOWN INDICATION
     Dosage: 1.25 MG, QD
     Dates: start: 20020928
  3. BENICAR HCT [Suspect]
     Active Substance: HYDROCHLOROTHIAZIDE\OLMESARTAN MEDOXOMIL
     Dosage: 40MG/12.5MG, QD
     Route: 048
     Dates: start: 201204, end: 201405
  4. BENICAR [Suspect]
     Active Substance: OLMESARTAN MEDOXOMIL
     Dosage: 40 MG, UNK
     Dates: start: 20120517
  5. BENICAR HCT [Suspect]
     Active Substance: HYDROCHLOROTHIAZIDE\OLMESARTAN MEDOXOMIL
     Indication: HYPERTENSION
     Dosage: 20MG/12.5MG, UNK
     Dates: start: 200409, end: 2008

REACTIONS (16)
  - Gastroenteritis viral [Unknown]
  - Large intestine polyp [Unknown]
  - Coeliac disease [Not Recovered/Not Resolved]
  - Pancreatitis acute [Not Recovered/Not Resolved]
  - Gastrooesophageal reflux disease [Recovering/Resolving]
  - Irritable bowel syndrome [Unknown]
  - Cholestasis [Recovered/Resolved]
  - Chronic hepatitis [Unknown]
  - Biliary dyskinesia [Unknown]
  - Bladder diverticulum [Unknown]
  - Hypotension [Unknown]
  - Tongue ulceration [Unknown]
  - Acute kidney injury [Unknown]
  - Cholecystitis chronic [Unknown]
  - Sprue-like enteropathy [Not Recovered/Not Resolved]
  - Liver function test abnormal [Not Recovered/Not Resolved]

NARRATIVE: CASE EVENT DATE: 2003
